FAERS Safety Report 12119627 (Version 1)
Quarter: 2016Q1

REPORT INFORMATION
  Report Type: Spontaneous
  Country: US (occurrence: None)
  Receive Date: 20160225
  Receipt Date: 20160225
  Transmission Date: 20160526
  Serious: Yes (Other)
  Sender: FDA-Public Use
  Company Number: None

PATIENT
  Age: 15 Year
  Sex: Female
  Weight: 58.06 kg

DRUGS (1)
  1. NEXPLANON [Suspect]
     Active Substance: ETONOGESTREL
     Indication: CONTRACEPTION
     Dosage: 3 YEAR IMPLANT IN ARM

REACTIONS (8)
  - Fatigue [None]
  - Depression [None]
  - Dysmenorrhoea [None]
  - Headache [None]
  - Back pain [None]
  - Abdominal pain upper [None]
  - Haemorrhage [None]
  - Mood swings [None]
